FAERS Safety Report 7684784-5 (Version None)
Quarter: 2011Q3

REPORT INFORMATION
  Report Type: 
  Country: None (occurrence: None)
  Receive Date: 20110810
  Receipt Date: 20110728
  Transmission Date: 20111222
  Serious: Yes (Death, Other)
  Sender: FDA-Public Use
  Company Number: MC201100233

PATIENT
  Age: 55 Year
  Sex: Male
  Weight: 95 kg

DRUGS (3)
  1. ANGIOMAX [Suspect]
     Indication: PERCUTANEOUS CORONARY INTERVENTION
     Dosage: 0.75 MG/KG, BOLUS, FEM ACCESS PCI 1.75 MG/KG, HR, FEM ACCESS PCI
     Dates: start: 20110515, end: 20110515
  2. INTEGRILIN [Concomitant]
  3. PLAVIX [Concomitant]

REACTIONS (7)
  - CORONARY ARTERY THROMBOSIS [None]
  - MYOCARDIAL INFARCTION [None]
  - COAGULATION TIME ABNORMAL [None]
  - NO THERAPEUTIC RESPONSE [None]
  - ELECTROCARDIOGRAM ST SEGMENT ELEVATION [None]
  - MEDICAL DEVICE COMPLICATION [None]
  - CORONARY ARTERY OCCLUSION [None]
